FAERS Safety Report 7200620-5 (Version None)
Quarter: 2010Q4

REPORT INFORMATION
  Report Type: 
  Country: None (occurrence: None)
  Receive Date: 20101228
  Receipt Date: 20101222
  Transmission Date: 20110411
  Serious: Yes (Hospitalization)
  Sender: FDA-Public Use
  Company Number: IT-JNJFOC-20101107704

PATIENT
  Sex: Male

DRUGS (6)
  1. INVEGA [Suspect]
     Indication: BIPOLAR DISORDER
     Route: 048
  2. CARVEDILOL [Concomitant]
     Indication: HYPERTENSION
     Route: 048
  3. SIMVASTATINA [Concomitant]
     Indication: ILL-DEFINED DISORDER
  4. DEPAKENE [Concomitant]
     Indication: BIPOLAR DISORDER
     Route: 048
  5. ASPIRIN [Concomitant]
     Indication: MYOCARDIAL INFARCTION
     Route: 048
  6. NITROSORBIDE [Concomitant]
     Indication: MYOCARDIAL INFARCTION

REACTIONS (4)
  - BALANCE DISORDER [None]
  - DIZZINESS [None]
  - DYSPNOEA [None]
  - EXTRAPYRAMIDAL DISORDER [None]
